FAERS Safety Report 7683424-9 (Version None)
Quarter: 2011Q3

REPORT INFORMATION
  Report Type: 
  Country: None (occurrence: None)
  Receive Date: 20110815
  Receipt Date: 20110815
  Transmission Date: 20111222
  Serious: No
  Sender: FDA-Public Use
  Company Number: US-BAYER-201019075NA

PATIENT
  Sex: Female

DRUGS (1)
  1. YASMIN [Suspect]

REACTIONS (1)
  - TOOTH INFECTION [None]
